FAERS Safety Report 4521553-9 (Version None)
Quarter: 2004Q4

REPORT INFORMATION
  Report Type: 
  Country: None (occurrence: None)
  Receive Date: 20041101
  Receipt Date: 20040816
  Transmission Date: 20050328
  Serious: Yes (Hospitalization)
  Sender: FDA-Public Use
  Company Number: 139838USA

PATIENT
  Age: 76 Year
  Sex: Male
  Weight: 78.0187 kg

DRUGS (2)
  1. LISINOPRIL [Suspect]
     Indication: HYPERTENSION
     Dosage: 5 MILLIGRAM QD ORAL
     Route: 048
     Dates: start: 20040710, end: 20040711
  2. PLAVIX [Suspect]
     Indication: CEREBROVASCULAR ACCIDENT
     Dosage: 75 MILLIGRAM DAILY ORAL
     Route: 048
     Dates: start: 20040710

REACTIONS (3)
  - CHEST PAIN [None]
  - HEART RATE DECREASED [None]
  - HEART RATE IRREGULAR [None]
